FAERS Safety Report 8437260-6 (Version None)
Quarter: 2012Q2

REPORT INFORMATION
  Report Type: 
  Country: None (occurrence: None)
  Receive Date: 20120614
  Receipt Date: 20120302
  Transmission Date: 20120825
  Serious: No
  Sender: FDA-Public Use
  Company Number: US-AMGEN-USASP2012008904

PATIENT
  Age: 75 Year
  Sex: Female
  Weight: 57 kg

DRUGS (6)
  1. PROLIA [Suspect]
     Indication: OSTEOPOROSIS POSTMENOPAUSAL
     Dosage: 60 MG, Q6MO
     Route: 058
     Dates: start: 20120113, end: 20120113
  2. VITAMIN D [Concomitant]
  3. CALCIUM [Concomitant]
  4. METOPROLOL TARTRATE [Concomitant]
     Dosage: 50 MG, UNK
  5. DIOVAN [Concomitant]
  6. SIMVASTATIN [Concomitant]
     Dosage: 20 MG, UNK

REACTIONS (1)
  - CONSTIPATION [None]
